FAERS Safety Report 22526366 (Version 1)
Quarter: 2023Q2

REPORT INFORMATION
  Report Type: Report from Study
  Country: IL (occurrence: IL)
  Receive Date: 20230606
  Receipt Date: 20230606
  Transmission Date: 20230722
  Serious: Yes (Hospitalization)
  Sender: FDA-Public Use
  Company Number: IL-JNJFOC-20211135363

PATIENT
  Age: 68 Year
  Sex: Male
  Weight: 70 kg

DRUGS (19)
  1. TECLISTAMAB [Suspect]
     Active Substance: TECLISTAMAB
     Indication: Plasma cell myeloma
     Dosage: STEP UP DOSE 1
     Route: 058
     Dates: start: 20210704, end: 20210704
  2. TECLISTAMAB [Suspect]
     Active Substance: TECLISTAMAB
     Dosage: STEP UP DOSE 2
     Route: 058
     Dates: start: 20210706, end: 20210706
  3. TECLISTAMAB [Suspect]
     Active Substance: TECLISTAMAB
     Dosage: SINCE C1D1, MOST RECENT DOSE C1D5 ON 11-NOV-2021
     Route: 058
     Dates: start: 20210708
  4. TALQUETAMAB [Suspect]
     Active Substance: TALQUETAMAB
     Indication: Plasma cell myeloma
     Dosage: STEP UP DOSE 1
     Route: 058
     Dates: start: 20210704, end: 20210704
  5. TALQUETAMAB [Suspect]
     Active Substance: TALQUETAMAB
     Dosage: STEP UP DOSE 2
     Route: 058
     Dates: start: 20210706, end: 20210706
  6. TALQUETAMAB [Suspect]
     Active Substance: TALQUETAMAB
     Dosage: SINCE C1 D1,  MOST RECENT DOSE C5D1 ON 11-NOV-2021
     Route: 058
     Dates: start: 20210708
  7. CABOTRIM [Concomitant]
     Indication: Hyperprolactinaemia
     Route: 048
     Dates: start: 20130301
  8. LIPITOR [Concomitant]
     Active Substance: ATORVASTATIN CALCIUM
     Indication: Dyslipidaemia
     Route: 048
     Dates: start: 20141201
  9. VITAMIN B12 [Concomitant]
     Active Substance: CYANOCOBALAMIN
     Indication: Nutritional supplementation
     Route: 048
     Dates: start: 20170101
  10. CALCIUM [Concomitant]
     Active Substance: CALCIUM
     Indication: Nutritional supplementation
     Route: 048
     Dates: start: 20170101
  11. MAGNESIUM [Concomitant]
     Active Substance: MAGNESIUM
     Indication: Nutritional supplementation
     Route: 048
     Dates: start: 20170101
  12. ELIQUIS [Concomitant]
     Active Substance: APIXABAN
     Indication: Deep vein thrombosis
     Route: 048
     Dates: start: 20170101
  13. ACYCLOVIR [Concomitant]
     Active Substance: ACYCLOVIR
     Indication: Antiviral prophylaxis
     Route: 048
     Dates: start: 20190601
  14. DISEPTYL FORTE [Concomitant]
     Indication: Infection prophylaxis
     Route: 048
     Dates: start: 20190601
  15. NEXIUM [Concomitant]
     Active Substance: ESOMEPRAZOLE MAGNESIUM
     Indication: Gastrooesophageal reflux disease
     Route: 048
     Dates: start: 20191101
  16. HERBALS\SAW PALMETTO [Concomitant]
     Active Substance: HERBALS\SAW PALMETTO
     Indication: Benign prostatic hyperplasia
     Route: 048
     Dates: start: 20200101
  17. HYALURONATE SODIUM [Concomitant]
     Active Substance: HYALURONATE SODIUM
     Indication: Corneal disorder
     Route: 047
     Dates: start: 20210201
  18. RESTASIS [Concomitant]
     Active Substance: CYCLOSPORINE
     Indication: Corneal disorder
     Route: 047
     Dates: start: 20210201
  19. LEVOFLOXACIN [Concomitant]
     Active Substance: LEVOFLOXACIN
     Indication: Cough
     Route: 048
     Dates: start: 20211019, end: 20211026

REACTIONS (1)
  - Neutropenia [Recovered/Resolved]

NARRATIVE: CASE EVENT DATE: 20211115
